FAERS Safety Report 8021019-8 (Version None)
Quarter: 2011Q4

REPORT INFORMATION
  Report Type: 
  Country: None (occurrence: None)
  Receive Date: 20111228
  Receipt Date: 20111219
  Transmission Date: 20120403
  Serious: Yes (Hospitalization)
  Sender: FDA-Public Use
  Company Number: 2011MA017895

PATIENT
  Age: 82 Year
  Sex: Female

DRUGS (8)
  1. CITALOPRAM HYDROBROMIDE [Suspect]
     Indication: DEPRESSION
     Dosage: 10 MG; ; PO
     Route: 048
     Dates: end: 20111111
  2. ALENDRONATE SODIUM [Concomitant]
  3. SIMVASTATIN [Concomitant]
  4. OMEPRAZOLE [Concomitant]
  5. ASPIRIN [Concomitant]
  6. COSOPT [Concomitant]
  7. ADCAL-D3 [Concomitant]
  8. LATANOPROST [Concomitant]

REACTIONS (3)
  - HYPOPHAGIA [None]
  - CONFUSIONAL STATE [None]
  - HYPONATRAEMIA [None]
